FAERS Safety Report 9204926 (Version 1)
Quarter: 2013Q2

REPORT INFORMATION
  Report Type: Spontaneous
  Country: US (occurrence: None)
  Receive Date: 20130401
  Receipt Date: 20130401
  Transmission Date: 20140414
  Serious: Yes (Hospitalization)
  Sender: FDA-Public Use
  Company Number: None

PATIENT
  Age: 61 Year
  Sex: Male
  Weight: 107.7 kg

DRUGS (2)
  1. LISINOPRIL [Suspect]
     Dosage: 20 MG EVERY DAY PO
     Route: 048
     Dates: start: 20121021, end: 20121021
  2. SULFAMETHOXAZOLE/TRIMETHOPRIM [Suspect]
     Dosage: 1 TAB BID PO
     Route: 048
     Dates: start: 20121020, end: 20121021

REACTIONS (1)
  - Angioedema [None]
